FAERS Safety Report 5409520-4 (Version None)
Quarter: 2007Q3

REPORT INFORMATION
  Report Type: 
  Country: None (occurrence: None)
  Receive Date: 20070808
  Receipt Date: 20070808
  Transmission Date: 20080115
  Serious: Yes (Death)
  Sender: FDA-Public Use
  Company Number: None

PATIENT
  Age: 52 Year
  Sex: Male
  Weight: 77 kg

DRUGS (16)
  1. BEVACIZUMAB D1, D15/  28 D CYCLE [Suspect]
     Indication: PANCREATIC CARCINOMA METASTATIC
     Dosage: 10 MG/MG2 IV BOLUS
     Route: 040
     Dates: start: 20070517, end: 20070627
  2. GEMCITABINE [Suspect]
     Indication: PANCREATIC CARCINOMA METASTATIC
     Dosage: 1000MG/M2 IV BOLUS
     Route: 040
     Dates: start: 20070517, end: 20070627
  3. ERLOTINIB D1-D28/ 28D CYCLE [Suspect]
     Indication: PANCREATIC CARCINOMA METASTATIC
     Dosage: 100 MG, DAILY, ORAL
     Route: 048
     Dates: start: 20070517, end: 20070711
  4. ATIVAN [Concomitant]
  5. CELEXA [Concomitant]
  6. COLACE [Concomitant]
  7. LIDOCAINE/MAALOX/DIPHENHYDRAMINE [Concomitant]
  8. MIRALAX [Concomitant]
  9. OXYCODONE HCL [Concomitant]
  10. OXYCONTIN [Concomitant]
  11. PERIDEX MOUTHWASH [Concomitant]
  12. REGLAN [Concomitant]
  13. SENNA TABLETS [Concomitant]
  14. SIMETHICONE [Concomitant]
  15. TYLENOL (CAPLET) [Concomitant]
  16. ZYPREXA [Concomitant]

REACTIONS (1)
  - DISEASE PROGRESSION [None]
